FAERS Safety Report 6004321-0 (Version None)
Quarter: 2008Q4

REPORT INFORMATION
  Report Type: 
  Country: None (occurrence: None)
  Receive Date: 20081216
  Receipt Date: 20081215
  Transmission Date: 20090506
  Serious: Yes (Hospitalization)
  Sender: FDA-Public Use
  Company Number: FR-ABBOTT-08P-056-0488661-00

PATIENT
  Sex: Female
  Weight: 49 kg

DRUGS (6)
  1. MONOZECLAR [Suspect]
     Indication: BRONCHITIS
     Route: 048
     Dates: start: 20080918, end: 20080923
  2. ACETAMINOPHEN [Suspect]
     Indication: BRONCHITIS
     Route: 048
     Dates: start: 20080901
  3. CODEINE PHOSPHATE [Suspect]
     Indication: BRONCHITIS
     Dates: start: 20080901
  4. CARBOCISTEINE [Concomitant]
     Indication: BRONCHITIS
  5. METHYLPREDNISOLONE 16MG TAB [Concomitant]
     Indication: DRUG USE FOR UNKNOWN INDICATION
  6. BROMAZEPAM [Concomitant]
     Indication: DRUG USE FOR UNKNOWN INDICATION

REACTIONS (2)
  - CYTOLYTIC HEPATITIS [None]
  - HEPATITIS CHOLESTATIC [None]
